FAERS Safety Report 5706691-7 (Version None)
Quarter: 2008Q2

REPORT INFORMATION
  Report Type: 
  Country: None (occurrence: None)
  Receive Date: 20080416
  Receipt Date: 20080403
  Transmission Date: 20081010
  Serious: Yes (Other)
  Sender: FDA-Public Use
  Company Number: JP-BAYER-200810636BYL

PATIENT
  Age: 73 Year
  Sex: Female
  Weight: 49 kg

DRUGS (5)
  1. GLUCOBAY [Suspect]
     Indication: TYPE 2 DIABETES MELLITUS
     Dosage: AS USED: 150 MG  UNIT DOSE: 150 MG
     Route: 048
     Dates: start: 20061128
  2. NOVOLIN R [Concomitant]
     Indication: TYPE 2 DIABETES MELLITUS
     Route: 065
     Dates: start: 20061210
  3. ATELEC [Concomitant]
     Route: 048
     Dates: start: 20071206
  4. DEPAS [Concomitant]
     Dosage: AS USED: 0.5 MG
     Route: 048
  5. ALOSENN [Concomitant]
     Dosage: AS USED: 1.0 G
     Route: 048

REACTIONS (3)
  - DIARRHOEA [None]
  - INTESTINAL OBSTRUCTION [None]
  - VOMITING [None]
